FAERS Safety Report 5958543-5 (Version None)
Quarter: 2008Q4

REPORT INFORMATION
  Report Type: 
  Country: None (occurrence: None)
  Receive Date: 20081119
  Receipt Date: 20081104
  Transmission Date: 20090506
  Serious: Yes (Other)
  Sender: FDA-Public Use
  Company Number: TW-GENENTECH-271068

PATIENT

DRUGS (6)
  1. BEVACIZUMAB [Suspect]
     Indication: METASTATIC NEOPLASM
     Dosage: 5 MG/KG, UNK
     Route: 065
  2. CAPECITABINE [Suspect]
     Indication: METASTATIC NEOPLASM
     Dosage: 600 MG/M2, UNK
     Route: 065
  3. OXALIPLATIN [Suspect]
     Indication: METASTATIC NEOPLASM
     Dosage: 85 MG/M2, UNK
     Route: 065
  4. FLUOROURACIL [Suspect]
     Indication: METASTATIC NEOPLASM
     Dosage: 2400 MG/M2, UNK
     Route: 065
  5. LEUCOVORIN CALCIUM [Suspect]
     Indication: METASTATIC NEOPLASM
     Dosage: 150 MG, Q2W
     Route: 065
  6. IRINOTECAN HYDROCHLORIDE [Suspect]
     Indication: METASTATIC NEOPLASM
     Dosage: 180 MG/M2, UNK
     Route: 065

REACTIONS (1)
  - ANAEMIA [None]
